FAERS Safety Report 5078577-5 (Version None)
Quarter: 2006Q3

REPORT INFORMATION
  Report Type: 
  Country: None (occurrence: None)
  Receive Date: 20060808
  Receipt Date: 20060728
  Transmission Date: 20061208
  Serious: Yes (Other)
  Sender: FDA-Public Use
  Company Number: S06-USA-02274-01

PATIENT
  Age: 78 Year
  Sex: Male
  Weight: 54.8852 kg

DRUGS (18)
  1. NAMENDA [Suspect]
     Indication: DEMENTIA
     Dosage: 10 MG BID PO
     Route: 048
     Dates: start: 20060526, end: 20060707
  2. NAMENDA [Suspect]
     Indication: DEMENTIA
     Dosage: 10 MG QD PO
     Route: 048
     Dates: start: 20060709
  3. NAMENDA [Suspect]
     Indication: DEMENTIA
     Dosage: 5 MG QD PO
     Route: 048
     Dates: start: 20060505, end: 20060511
  4. NAMENDA [Suspect]
     Indication: DEMENTIA
     Dosage: 5 MG BID PO
     Route: 048
     Dates: start: 20060512, end: 20060518
  5. NAMENDA [Suspect]
     Indication: DEMENTIA
     Dosage: 15 MG QD PO
     Route: 048
     Dates: start: 20060519, end: 20060525
  6. ARICEPT [Concomitant]
  7. LASIX [Concomitant]
  8. TOPROL-XL [Concomitant]
  9. ALTACE [Concomitant]
  10. DIGOXIN [Concomitant]
  11. COUMADIN [Concomitant]
  12. SYNTHROID [Concomitant]
  13. XALATAN [Concomitant]
  14. POTASSIUM CHLORIDE [Concomitant]
  15. FOLIC ACID [Concomitant]
  16. VITAMIN B COMPLEX CAP [Concomitant]
  17. ASPIRIN [Concomitant]
  18. THERAPEUTIC VITAMINS (NOS) [Concomitant]

REACTIONS (9)
  - ASTHENIA [None]
  - CONDITION AGGRAVATED [None]
  - DEMENTIA [None]
  - DISSOCIATION [None]
  - DRUG INEFFECTIVE [None]
  - HYPERSOMNIA [None]
  - LETHARGY [None]
  - LOSS OF CONSCIOUSNESS [None]
  - WRIST FRACTURE [None]
